FAERS Safety Report 14366448 (Version 18)
Quarter: 2025Q1

REPORT INFORMATION
  Report Type: Report from Study
  Country: CO (occurrence: CO)
  Receive Date: 20180109
  Receipt Date: 20250319
  Transmission Date: 20250408
  Serious: Yes (Hospitalization, Other)
  Sender: NOVARTIS
  Company Number: PHHY2018CO000932

PATIENT
  Age: 60 Year
  Sex: Male
  Weight: 58 kg

DRUGS (8)
  1. TASIGNA [Suspect]
     Active Substance: NILOTINIB
     Indication: Chronic myeloid leukaemia
     Dosage: 300 MG, Q12H, 600 MG, QD (DAILY)
     Route: 048
     Dates: start: 20171114
  2. TASIGNA [Suspect]
     Active Substance: NILOTINIB
     Indication: Leukaemia
     Dosage: 150 MG, Q12H
     Route: 048
     Dates: start: 201712
  3. TASIGNA [Suspect]
     Active Substance: NILOTINIB
     Dosage: 300 MG, Q12H
     Route: 048
     Dates: start: 20241222
  4. TASIGNA [Suspect]
     Active Substance: NILOTINIB
     Dosage: UNK, Q12H
     Route: 048
  5. TASIGNA [Suspect]
     Active Substance: NILOTINIB
     Route: 065
  6. TASIGNA [Suspect]
     Active Substance: NILOTINIB
     Dosage: 300 MG, QMO
     Route: 065
  7. TASIGNA [Suspect]
     Active Substance: NILOTINIB
     Dosage: 300 MG, Q12H
     Route: 065
  8. IMATINIB [Concomitant]
     Active Substance: IMATINIB
     Indication: Product used for unknown indication
     Route: 065
     Dates: start: 2022

REACTIONS (36)
  - Splenomegaly [Unknown]
  - Head discomfort [Recovered/Resolved]
  - Contusion [Recovered/Resolved]
  - Pyrexia [Unknown]
  - Syncope [Unknown]
  - Blindness [Unknown]
  - Malignant neoplasm progression [Recovered/Resolved]
  - Chronic myeloid leukaemia [Recovered/Resolved]
  - Full blood count decreased [Unknown]
  - Platelet count increased [Unknown]
  - Platelet count decreased [Unknown]
  - Psychiatric symptom [Unknown]
  - Abnormal behaviour [Unknown]
  - Joint dislocation [Unknown]
  - Limb discomfort [Unknown]
  - Fear [Unknown]
  - Areflexia [Unknown]
  - General physical health deterioration [Unknown]
  - Lip discolouration [Unknown]
  - Arthralgia [Unknown]
  - Skin discolouration [Unknown]
  - Malaise [Unknown]
  - Palpitations [Unknown]
  - Weight decreased [Unknown]
  - Fatigue [Unknown]
  - Product packaging issue [Unknown]
  - Inappropriate schedule of product administration [Unknown]
  - Product availability issue [Unknown]
  - Amnesia [Not Recovered/Not Resolved]
  - Discouragement [Not Recovered/Not Resolved]
  - Intentional product misuse [Unknown]
  - Body height decreased [Unknown]
  - Weight increased [Unknown]
  - Muscular weakness [Not Recovered/Not Resolved]
  - Contusion [Unknown]
  - Nail discolouration [Recovering/Resolving]

NARRATIVE: CASE EVENT DATE: 20180620
